FAERS Safety Report 7913727-1 (Version None)
Quarter: 2011Q4

REPORT INFORMATION
  Report Type: 
  Country: None (occurrence: None)
  Receive Date: 20111115
  Receipt Date: 20111104
  Transmission Date: 20120403
  Serious: Yes (Hospitalization)
  Sender: FDA-Public Use
  Company Number: US-BAYER-201031871NA

PATIENT
  Age: 42 Year
  Sex: Female
  Weight: 81.179 kg

DRUGS (9)
  1. LYRICA [Concomitant]
     Dosage: 150 MG, QD
     Dates: start: 20081001, end: 20090101
  2. OXYCODONE HCL [Concomitant]
     Indication: PAIN
     Dosage: 20 MG, Q4HR
     Dates: start: 20080501, end: 20090301
  3. CYMBALTA [Concomitant]
     Indication: DEPRESSION
     Dosage: 30 MG, QD
     Dates: start: 20081001, end: 20090101
  4. LYRICA [Concomitant]
     Indication: FIBROMYALGIA
     Dosage: 150 MG/D, IRR
     Dates: start: 20080101, end: 20080101
  5. YAZ [Suspect]
     Indication: ACNE
  6. BACLOFEN [Concomitant]
     Indication: FIBROMYALGIA
     Dosage: 20 MG, TID
     Dates: start: 20081001, end: 20090201
  7. YAZ [Suspect]
     Indication: CONTRACEPTION
     Dosage: UNK
     Dates: start: 20081216, end: 20090126
  8. CARISOPRODOL [Concomitant]
     Indication: PAIN
     Dosage: 350 MG, QD
     Dates: start: 20090101, end: 20090301
  9. REQUIP [Concomitant]
     Indication: RESTLESS LEGS SYNDROME
     Dosage: 1 MG, TID
     Dates: start: 20081001, end: 20090201

REACTIONS (4)
  - PULMONARY EMBOLISM [None]
  - DEEP VEIN THROMBOSIS [None]
  - ANXIETY [None]
  - DEPRESSION [None]
